FAERS Safety Report 10168804 (Version 1)
Quarter: 2014Q2

REPORT INFORMATION
  Report Type: Spontaneous
  Country: US (occurrence: None)
  Receive Date: 20140509
  Receipt Date: 20140509
  Transmission Date: 20141212
  Serious: Yes (Death)
  Sender: FDA-Public Use
  Company Number: UTC-048164

PATIENT
  Age: 75 Year
  Sex: Male
  Weight: 135.1 kg

DRUGS (1)
  1. REMODULIN (5 MILLIGRAM/MILLILITERS, INJECTION FOR INFUSION) (TREPROSTINIL SODIUM) [Suspect]
     Indication: PULMONARY ARTERIAL HYPERTENSION
     Dosage: 11.52 UG/KG (0.008 UG/KG, 1 IN 1 MIN), SUBCUTANEOUS
     Dates: start: 20140327

REACTIONS (1)
  - Death [None]
